FAERS Safety Report 9664790 (Version 2)
Quarter: 2013Q4

REPORT INFORMATION
  Report Type: Report from Study
  Country: US (occurrence: US)
  Receive Date: 20131101
  Receipt Date: 20131101
  Transmission Date: 20140711
  Serious: Yes (Hospitalization)
  Sender: FDA-Public Use
  Company Number: US-US-EMD SERONO, INC.-7240544

PATIENT
  Age: 48 Year
  Sex: Female

DRUGS (4)
  1. REBIF [Suspect]
     Indication: MULTIPLE SCLEROSIS
     Route: 058
     Dates: start: 20050516
  2. LAMICTAL [Suspect]
     Indication: PARTIAL SEIZURES
  3. LAMICTAL [Suspect]
  4. CLONAZEPAM [Suspect]
     Indication: ANXIETY
     Dates: end: 20131025

REACTIONS (3)
  - Dizziness [Recovered/Resolved]
  - Anticonvulsant drug level increased [Unknown]
  - Injection site infection [Unknown]
